FAERS Safety Report 21948723 (Version 1)
Quarter: 2023Q1

REPORT INFORMATION
  Report Type: Spontaneous
  Country: US (occurrence: US)
  Receive Date: 20230203
  Receipt Date: 20230203
  Transmission Date: 20230418
  Serious: Yes (Hospitalization)
  Sender: FDA-Public Use
  Company Number: US-STRIDES ARCOLAB LIMITED-2023SP001573

PATIENT
  Age: 20 Year
  Sex: Male

DRUGS (8)
  1. ETOPOSIDE [Suspect]
     Active Substance: ETOPOSIDE
     Indication: Hepatotoxicity
     Dosage: UNK, CYCLICAL
     Route: 065
  2. ETOPOSIDE [Suspect]
     Active Substance: ETOPOSIDE
     Indication: Nephropathy toxic
     Dosage: UNK
     Route: 065
  3. ETOPOSIDE [Suspect]
     Active Substance: ETOPOSIDE
     Indication: Plasmablastic lymphoma
  4. DEXAMETHASONE [Suspect]
     Active Substance: DEXAMETHASONE
     Indication: Hepatotoxicity
     Dosage: UNK, CYCLICAL
     Route: 065
  5. DEXAMETHASONE [Suspect]
     Active Substance: DEXAMETHASONE
     Indication: Nephropathy toxic
  6. IFOSFAMIDE [Suspect]
     Active Substance: IFOSFAMIDE
     Indication: Plasmablastic lymphoma
     Dosage: UNK, CYCLICAL
     Route: 065
  7. CARBOPLATIN [Suspect]
     Active Substance: CARBOPLATIN
     Indication: Plasmablastic lymphoma
     Dosage: UNK, CYCLICAL
     Route: 065
  8. RITUXIMAB [Suspect]
     Active Substance: RITUXIMAB
     Indication: Epstein-Barr viraemia
     Dosage: UNK, CYCLICAL, WEEKLY
     Route: 065

REACTIONS (8)
  - Respiratory failure [Unknown]
  - Hypertransaminasaemia [Unknown]
  - Condition aggravated [Unknown]
  - Pancytopenia [Unknown]
  - Septic shock [Unknown]
  - Pneumonia [Unknown]
  - Enterococcal bacteraemia [Unknown]
  - Off label use [Unknown]
